FAERS Safety Report 14586141 (Version 2)
Quarter: 2018Q2

REPORT INFORMATION
  Report Type: Report from Study
  Country: US (occurrence: US)
  Receive Date: 20180301
  Receipt Date: 20180403
  Transmission Date: 20180711
  Serious: Yes (Hospitalization, Other)
  Sender: FDA-Public Use
  Company Number: US-GILEAD-2018-0323202

PATIENT
  Age: 49 Year
  Sex: Female
  Weight: 74.38 kg

DRUGS (1)
  1. AMBRISENTAN [Suspect]
     Active Substance: AMBRISENTAN
     Indication: PULMONARY ARTERIAL HYPERTENSION
     Dosage: 10 MG, QD
     Route: 065

REACTIONS (5)
  - Fluid retention [Unknown]
  - Asthma [Unknown]
  - Dyspnoea [Unknown]
  - Cardiac failure [Unknown]
  - Oedema peripheral [Unknown]
